FAERS Safety Report 6698484-1 (Version None)
Quarter: 2010Q2

REPORT INFORMATION
  Report Type: 
  Country: None (occurrence: None)
  Receive Date: 20100427
  Receipt Date: 20100416
  Transmission Date: 20101027
  Serious: Yes (Other)
  Sender: FDA-Public Use
  Company Number: FR-AMGEN-KDL403383

PATIENT
  Sex: Female

DRUGS (3)
  1. ARANESP [Suspect]
     Route: 030
     Dates: start: 20100402, end: 20100402
  2. NEUPOGEN [Concomitant]
     Indication: CHEMOTHERAPY
  3. ZOPHREN [Concomitant]
     Route: 048

REACTIONS (1)
  - WRONG DRUG ADMINISTERED [None]
